FAERS Safety Report 8229087-5 (Version None)
Quarter: 2012Q1

REPORT INFORMATION
  Report Type: 
  Country: None (occurrence: None)
  Receive Date: 20120322
  Receipt Date: 20120308
  Transmission Date: 20120608
  Serious: Yes (Hospitalization, Disabling)
  Sender: FDA-Public Use
  Company Number: US-WATSON-2012-04570

PATIENT
  Age: 34 Year
  Sex: Male

DRUGS (2)
  1. DIAZEPAM [Suspect]
     Indication: SUICIDE ATTEMPT
     Dosage: UNK
  2. ACETAMINOPHEN [Suspect]
     Indication: PRODUCT USED FOR UNKNOWN INDICATION
     Dosage: UNK

REACTIONS (11)
  - HALLUCINATION [None]
  - DEMYELINATION [None]
  - ABNORMAL BEHAVIOUR [None]
  - CONFUSIONAL STATE [None]
  - AGITATION [None]
  - PSYCHOTIC DISORDER [None]
  - PYREXIA [None]
  - OVERDOSE [None]
  - COMA [None]
  - GAIT DISTURBANCE [None]
  - DISINHIBITION [None]
